FAERS Safety Report 7869482-7 (Version None)
Quarter: 2011Q4

REPORT INFORMATION
  Report Type: 
  Country: None (occurrence: None)
  Receive Date: 20111027
  Receipt Date: 20111011
  Transmission Date: 20120403
  Serious: No
  Sender: FDA-Public Use
  Company Number: TPA2010A01004

PATIENT
  Age: 72 Year
  Sex: Female
  Weight: 49.8957 kg

DRUGS (9)
  1. TRAVATAN [Suspect]
     Indication: GLAUCOMA
     Dosage: OPHTHALMIC
     Route: 047
  2. UNKNOWN ANTI-ANXIETY MEDICATION (ANXIOLYTICS) [Concomitant]
  3. PREVACID [Suspect]
     Indication: NAUSEA
     Dosage: 15 MG, 1 IN 1 D, PER ORAL
     Route: 048
     Dates: start: 20000101
  4. PREVACID [Suspect]
     Indication: ERUCTATION
     Dosage: 15 MG, 1 IN 1 D, PER ORAL
     Route: 048
     Dates: start: 20000101
  5. ACTONEL [Suspect]
     Indication: OSTEOPOROSIS
     Dosage: 35 MG, 1 IN 1 WK, PER ORAL ; 35 MG, 1 IN 1 WK, PER ORAL
     Route: 048
     Dates: start: 20110301, end: 20110401
  6. ACTONEL [Suspect]
     Indication: OSTEOPOROSIS
     Dosage: 35 MG, 1 IN 1 WK, PER ORAL ; 35 MG, 1 IN 1 WK, PER ORAL
     Route: 048
     Dates: start: 20080601, end: 20100601
  7. ZOCOR (ALL OTHER THERAPEUTIC PRODUCTS) [Concomitant]
  8. XALATAN [Concomitant]
  9. SYNTHROID [Concomitant]

REACTIONS (7)
  - DRUG EFFECT DECREASED [None]
  - NERVOUSNESS [None]
  - WEIGHT DECREASED [None]
  - GLAUCOMA [None]
  - NAUSEA [None]
  - OSTEOPOROSIS [None]
  - ERUCTATION [None]
